FAERS Safety Report 9044636 (Version 1)
Quarter: 2013Q1

REPORT INFORMATION
  Report Type: Spontaneous
  Country: US (occurrence: US)
  Receive Date: 20130130
  Receipt Date: 20130130
  Transmission Date: 20140127
  Serious: No
  Sender: FDA-Public Use
  Company Number: US-BAYER-2013-005491

PATIENT
  Age: 32 Year
  Sex: Male
  Weight: 81.63 kg

DRUGS (4)
  1. BETASERON [Suspect]
     Dosage: 0.25 MG, QOD
     Route: 058
  2. BETASERON [Suspect]
     Dosage: 1 ML, QOD
     Route: 058
  3. AMANTADINE [Concomitant]
     Dosage: 100 MG, UNK
  4. IBUPROFEN [Concomitant]
     Dosage: 200 MG, UNK

REACTIONS (1)
  - Depression [Unknown]
